FAERS Safety Report 12421377 (Version 1)
Quarter: 2016Q2

REPORT INFORMATION
  Report Type: Report from Study
  Country: CA (occurrence: CA)
  Receive Date: 20160531
  Receipt Date: 20160531
  Transmission Date: 20160815
  Serious: Yes (Hospitalization, Other)
  Sender: FDA-Public Use
  Company Number: CA-TAKEDA-2016TUS007539

PATIENT
  Age: 22 Year
  Sex: Male

DRUGS (5)
  1. REMICADE [Concomitant]
     Active Substance: INFLIXIMAB
     Dosage: UNK
     Dates: start: 2013
  2. VEDOLIZUMAB [Suspect]
     Active Substance: VEDOLIZUMAB
     Indication: COLITIS ULCERATIVE
     Dosage: 300 MG, UNK
     Route: 042
     Dates: start: 20150608, end: 20160427
  3. MEZAVANT [Concomitant]
     Active Substance: MESALAMINE
     Dosage: 1.5 G, QD
     Dates: start: 201211
  4. PREDNISONE. [Concomitant]
     Active Substance: PREDNISONE
     Dosage: 20 MG, QD
     Dates: start: 201211
  5. URSODIOL. [Concomitant]
     Active Substance: URSODIOL
     Dosage: 2 G, QD

REACTIONS (2)
  - Drug ineffective [Unknown]
  - Ileostomy [Unknown]

NARRATIVE: CASE EVENT DATE: 20160513
